FAERS Safety Report 14347373 (Version 1)
Quarter: 2018Q1

REPORT INFORMATION
  Report Type: Spontaneous
  Country: US (occurrence: US)
  Receive Date: 20180102
  Receipt Date: 20180102
  Transmission Date: 20180509
  Serious: No
  Sender: FDA-Public Use
  Company Number: None

PATIENT
  Age: 54 Year
  Sex: Female
  Weight: 63 kg

DRUGS (1)
  1. CIPRO [Suspect]
     Active Substance: CIPROFLOXACIN HYDROCHLORIDE
     Indication: ORAL INFECTION
     Route: 048

REACTIONS (12)
  - Bone pain [None]
  - Constipation [None]
  - Vision blurred [None]
  - Decreased appetite [None]
  - Fatigue [None]
  - Headache [None]
  - Lethargy [None]
  - Dry eye [None]
  - Pruritus [None]
  - Dizziness [None]
  - Arthralgia [None]
  - Back pain [None]

NARRATIVE: CASE EVENT DATE: 20171213
